FAERS Safety Report 21914904 (Version 13)
Quarter: 2024Q3

REPORT INFORMATION
  Report Type: Report from Study
  Country: DE (occurrence: DE)
  Receive Date: 20230126
  Receipt Date: 20240923
  Transmission Date: 20241017
  Serious: Yes (Hospitalization, Other)
  Sender: ROCHE
  Company Number: DE-ROCHE-2798517

PATIENT
  Age: 40 Year
  Sex: Female

DRUGS (14)
  1. OCREVUS [Suspect]
     Active Substance: OCRELIZUMAB
     Indication: Secondary progressive multiple sclerosis
     Dosage: 600 MG IN 176 DAYS
     Route: 042
     Dates: start: 20210317
  2. OCREVUS [Suspect]
     Active Substance: OCRELIZUMAB
     Indication: Relapsing-remitting multiple sclerosis
     Route: 042
  3. OCREVUS [Suspect]
     Active Substance: OCRELIZUMAB
     Route: 042
  4. ENALAPRIL [Concomitant]
     Active Substance: ENALAPRIL
  5. BISOPROLOL FUMARATE [Concomitant]
     Active Substance: BISOPROLOL FUMARATE
  6. PREGABALIN [Concomitant]
     Active Substance: PREGABALIN
  7. DARIFENACIN HYDROBROMIDE [Concomitant]
     Active Substance: DARIFENACIN HYDROBROMIDE
  8. OMEGA 3 [Concomitant]
     Active Substance: CAPSAICIN
  9. PROPIONIC ACID [Concomitant]
     Active Substance: PROPIONIC ACID
  10. BACLOFEN [Concomitant]
     Active Substance: BACLOFEN
  11. ENOXAPARIN SODIUM [Concomitant]
     Active Substance: ENOXAPARIN SODIUM
     Dosage: S.C
  12. HYGROTON [Concomitant]
     Active Substance: CHLORTHALIDONE
  13. VITAMIN B12 [Concomitant]
     Active Substance: CYANOCOBALAMIN
  14. WEGOVY [Concomitant]
     Active Substance: SEMAGLUTIDE

REACTIONS (48)
  - Pneumonia [Recovering/Resolving]
  - Abdominal pain upper [Recovered/Resolved]
  - Pruritus [Recovered/Resolved]
  - Acne [Recovered/Resolved]
  - Gait disturbance [Not Recovered/Not Resolved]
  - Urinary tract infection [Recovered/Resolved]
  - Back pain [Not Recovered/Not Resolved]
  - Abdominal pain lower [Not Recovered/Not Resolved]
  - Oropharyngeal pain [Not Recovered/Not Resolved]
  - Cystitis [Recovering/Resolving]
  - Fall [Unknown]
  - Musculoskeletal pain [Recovered/Resolved]
  - Feeling hot [Recovered/Resolved]
  - Ear pruritus [Recovered/Resolved]
  - Dyspnoea [Recovered/Resolved]
  - Throat tightness [Recovered/Resolved]
  - Throat irritation [Recovered/Resolved]
  - Cystitis noninfective [Not Recovered/Not Resolved]
  - Sensory disturbance [Not Recovered/Not Resolved]
  - Hypoaesthesia [Not Recovered/Not Resolved]
  - Paraesthesia [Not Recovered/Not Resolved]
  - Nail disorder [Recovered/Resolved]
  - Nail bed bleeding [Recovered/Resolved]
  - Limb injury [Recovered/Resolved]
  - Panic attack [Not Recovered/Not Resolved]
  - Alopecia [Not Recovered/Not Resolved]
  - Fluid retention [Recovering/Resolving]
  - Muscle spasticity [Recovering/Resolving]
  - Musculoskeletal stiffness [Not Recovered/Not Resolved]
  - Acne [Not Recovered/Not Resolved]
  - Asthenia [Not Recovered/Not Resolved]
  - Decubitus ulcer [Recovered/Resolved]
  - Asthenia [Not Recovered/Not Resolved]
  - Neuralgia [Not Recovered/Not Resolved]
  - Musculoskeletal stiffness [Not Recovered/Not Resolved]
  - Abdominal pain [Recovered/Resolved]
  - Constipation [Not Recovered/Not Resolved]
  - Muscular weakness [Not Recovered/Not Resolved]
  - Fatigue [Recovered/Resolved]
  - Malaise [Unknown]
  - Malaise [Recovered/Resolved]
  - Insomnia [Recovered/Resolved]
  - Nasopharyngitis [Not Recovered/Not Resolved]
  - Rash [Recovered/Resolved]
  - Drug intolerance [Recovered/Resolved]
  - Vomiting [Recovered/Resolved]
  - Diarrhoea [Recovered/Resolved]
  - Pyrexia [Recovered/Resolved]

NARRATIVE: CASE EVENT DATE: 20210317
